FAERS Safety Report 5017762-5 (Version None)
Quarter: 2006Q2

REPORT INFORMATION
  Report Type: 
  Country: None (occurrence: None)
  Receive Date: 20060605
  Receipt Date: 20060531
  Transmission Date: 20061013
  Serious: Yes (Hospitalization)
  Sender: FDA-Public Use
  Company Number: FI-JNJFOC-20060600041

PATIENT
  Sex: Male

DRUGS (12)
  1. RISPERDAL [Suspect]
     Indication: SCHIZOAFFECTIVE DISORDER
     Dosage: STARTED BEFORE 1998
     Route: 048
  2. MIAXAN [Concomitant]
     Indication: INSOMNIA
  3. PRIMASPAN [Concomitant]
  4. TENOX [Concomitant]
     Indication: INSOMNIA
     Dosage: 20-40MG DAILY
  5. DIAPAM [Concomitant]
     Indication: ANXIETY
     Dosage: 5-15MG DAILY
  6. OMNIC [Concomitant]
     Indication: BENIGN PROSTATIC HYPERPLASIA
  7. DIFORMIN RETARD [Concomitant]
     Indication: DIABETES MELLITUS
  8. ARTHRYL [Concomitant]
  9. ARTHRYL [Concomitant]
  10. ARTHRYL [Concomitant]
     Indication: OSTEOARTHRITIS
  11. SIMVASTATIN [Concomitant]
     Indication: HYPERCHOLESTEROLAEMIA
  12. RANITIDINE [Concomitant]
     Indication: DYSPEPSIA

REACTIONS (2)
  - FALL [None]
  - MUSCLE RIGIDITY [None]
